FAERS Safety Report 14207042 (Version 2)
Quarter: 2017Q4

REPORT INFORMATION
  Report Type: Report from Study
  Country: US (occurrence: US)
  Receive Date: 20171121
  Receipt Date: 20171129
  Transmission Date: 20180321
  Serious: Yes (Death, Hospitalization, Other)
  Sender: FDA-Public Use
  Company Number: US-ROCHE-1791870

PATIENT
  Age: 48 Year
  Sex: Female
  Weight: 53.12 kg

DRUGS (2)
  1. TRASTUZUMAB. [Suspect]
     Active Substance: TRASTUZUMAB
     Indication: HER-2 POSITIVE BREAST CANCER
     Route: 037
     Dates: start: 20160602
  2. TRASTUZUMAB. [Suspect]
     Active Substance: TRASTUZUMAB
     Indication: METASTASES TO MENINGES

REACTIONS (9)
  - Pneumonia aspiration [Fatal]
  - Syncope [Recovered/Resolved]
  - Dyspnoea [Not Recovered/Not Resolved]
  - Non-cardiac chest pain [Not Recovered/Not Resolved]
  - Disease progression [Unknown]
  - Dysphagia [Not Recovered/Not Resolved]
  - Lung infection [Not Recovered/Not Resolved]
  - Lymphocyte count decreased [Not Recovered/Not Resolved]
  - Platelet count decreased [Not Recovered/Not Resolved]

NARRATIVE: CASE EVENT DATE: 20160603
